FAERS Safety Report 11983377 (Version 2)
Quarter: 2016Q1

REPORT INFORMATION
  Report Type: Report from Study
  Country: DE (occurrence: DE)
  Receive Date: 20160201
  Receipt Date: 20160222
  Transmission Date: 20160526
  Serious: Yes (Life-Threatening, Hospitalization, Other)
  Sender: FDA-Public Use
  Company Number: DE-SA-2016SA014376

PATIENT
  Age: 62 Year
  Sex: Male
  Weight: 93 kg

DRUGS (5)
  1. ZALTRAP [Suspect]
     Active Substance: ZIV-AFLIBERCEPT
     Indication: COLORECTAL CANCER METASTATIC
     Route: 042
     Dates: start: 20150519, end: 20150519
  2. LEUCOVORIN. [Concomitant]
     Active Substance: LEUCOVORIN
     Route: 065
  3. 5-FU [Concomitant]
     Active Substance: FLUOROURACIL
     Route: 065
  4. IRINOTECAN [Concomitant]
     Active Substance: IRINOTECAN
     Route: 065
  5. ZALTRAP [Suspect]
     Active Substance: ZIV-AFLIBERCEPT
     Indication: COLORECTAL CANCER METASTATIC
     Route: 042
     Dates: start: 20151110, end: 20151110

REACTIONS (2)
  - Sepsis [Recovered/Resolved]
  - Acute kidney injury [Recovered/Resolved]

NARRATIVE: CASE EVENT DATE: 20151118
